FAERS Safety Report 5213734-6 (Version None)
Quarter: 2007Q1

REPORT INFORMATION
  Report Type: 
  Country: None (occurrence: None)
  Receive Date: 20070119
  Receipt Date: 20070108
  Transmission Date: 20070707
  Serious: Yes (Death)
  Sender: FDA-Public Use
  Company Number: KR-PFIZER INC-2007002734

PATIENT
  Sex: Female
  Weight: 56 kg

DRUGS (7)
  1. ZYVOX [Suspect]
     Indication: PNEUMONIA
     Route: 042
     Dates: start: 20060411, end: 20060417
  2. ATIVAN [Concomitant]
     Indication: SEDATION
     Dosage: DAILY DOSE:300MG
     Route: 042
     Dates: start: 20060411, end: 20060421
  3. MORPHINE [Concomitant]
     Indication: SEDATION
     Dosage: DAILY DOSE:300MG
     Route: 042
     Dates: start: 20060411, end: 20060421
  4. AMINOPHYLLINE [Concomitant]
     Dosage: DAILY DOSE:375MG
     Route: 042
     Dates: start: 20060411, end: 20060427
  5. GENTAMICIN SULFATE [Concomitant]
     Dosage: DAILY DOSE:100MG
     Route: 042
     Dates: start: 20060411, end: 20060428
  6. FUNGIZONE [Concomitant]
     Dosage: DAILY DOSE:30MG
     Route: 042
     Dates: start: 20060406, end: 20060428
  7. MEROPEN [Concomitant]
     Dosage: DAILY DOSE:3GRAM
     Route: 042
     Dates: start: 20060401, end: 20060428

REACTIONS (1)
  - DEATH [None]
